FAERS Safety Report 25847412 (Version 1)
Quarter: 2025Q3

REPORT INFORMATION
  Report Type: Spontaneous
  Country: US (occurrence: US)
  Receive Date: 20250925
  Receipt Date: 20250925
  Transmission Date: 20251020
  Serious: Yes (Other)
  Sender: PFIZER
  Company Number: US-PFIZER INC-202500186958

PATIENT
  Age: 74 Year
  Sex: Female

DRUGS (1)
  1. DISOPYRAMIDE PHOSPHATE [Suspect]
     Active Substance: DISOPYRAMIDE PHOSPHATE
     Indication: Left ventricle outflow tract obstruction
     Dosage: 150 MG, 3X/DAY

REACTIONS (1)
  - Ejection fraction decreased [Unknown]
